FAERS Safety Report 19352040 (Version 1)
Quarter: 2021Q2

REPORT INFORMATION
  Report Type: Spontaneous
  Country: DE (occurrence: DE)
  Receive Date: 20210601
  Receipt Date: 20210601
  Transmission Date: 20210717
  Serious: Yes (Hospitalization)
  Sender: FDA-Public Use
  Company Number: DE-TAKEDA-2021TUS033360

PATIENT
  Sex: Female

DRUGS (4)
  1. EMGALITY [Interacting]
     Active Substance: GALCANEZUMAB-GNLM
     Dosage: 120 MILLIGRAM, MONTHLY
     Route: 058
     Dates: start: 201905, end: 20200403
  2. EMGALITY [Interacting]
     Active Substance: GALCANEZUMAB-GNLM
     Indication: MIGRAINE
     Dosage: 240 MILLIGRAM
     Route: 058
     Dates: start: 201905
  3. EMGALITY [Interacting]
     Active Substance: GALCANEZUMAB-GNLM
     Dosage: 120 MILLIGRAM, MONTHLY
     Route: 065
     Dates: start: 202005
  4. ENTYVIO [Suspect]
     Active Substance: VEDOLIZUMAB
     Indication: CROHN^S DISEASE
     Dosage: UNK
     Route: 065

REACTIONS (9)
  - Drug interaction [Unknown]
  - Migraine [Unknown]
  - Lipoma [Unknown]
  - Neoplasm [Unknown]
  - Blood pressure increased [Unknown]
  - Therapeutic product effect decreased [Unknown]
  - Coagulopathy [Unknown]
  - Malaise [Unknown]
  - Limb discomfort [Unknown]

NARRATIVE: CASE EVENT DATE: 2020
